FAERS Safety Report 17488317 (Version 15)
Quarter: 2021Q1

REPORT INFORMATION
  Report Type: Report from Study
  Country: CR (occurrence: CR)
  Receive Date: 20200303
  Receipt Date: 20210308
  Transmission Date: 20210419
  Serious: Yes (Life-Threatening, Other)
  Sender: FDA-Public Use
  Company Number: NVSC2020CR059107

PATIENT
  Age: 39 Year
  Sex: Female

DRUGS (6)
  1. GILENYA [Suspect]
     Active Substance: FINGOLIMOD HYDROCHLORIDE
     Dosage: 1 DF, QD (0.5 MG)
     Route: 048
     Dates: start: 202002
  2. IRBESARTAN. [Suspect]
     Active Substance: IRBESARTAN
     Indication: HYPERTENSION
     Dosage: QD, STARTED 3 YEARS AGO
     Route: 065
     Dates: start: 2017
  3. LEVOTHYROXINE. [Concomitant]
     Active Substance: LEVOTHYROXINE
     Indication: HYPOTHYROIDISM
     Dosage: QD, STARTED WHEN PATIENT WAS 18 YEARS
     Route: 065
  4. GILENYA [Suspect]
     Active Substance: FINGOLIMOD HYDROCHLORIDE
     Indication: RELAPSING-REMITTING MULTIPLE SCLEROSIS
     Dosage: 0.5 MG, QD
     Route: 048
     Dates: start: 20200125
  5. GILENYA [Suspect]
     Active Substance: FINGOLIMOD HYDROCHLORIDE
     Dosage: 0.5 MG (APPROXIMATELY 1 YEAR AGO)
     Route: 048
  6. GILENYA [Suspect]
     Active Substance: FINGOLIMOD HYDROCHLORIDE
     Dosage: 0.5 MG, QD
     Route: 048
     Dates: start: 20200225

REACTIONS (39)
  - Gait disturbance [Unknown]
  - Bradykinesia [Unknown]
  - Stress [Unknown]
  - Spinal disorder [Unknown]
  - Skin burning sensation [Unknown]
  - Fatigue [Not Recovered/Not Resolved]
  - Suicidal ideation [Unknown]
  - Hypoaesthesia [Unknown]
  - Pain [Unknown]
  - Fall [Unknown]
  - Memory impairment [Unknown]
  - Menorrhagia [Unknown]
  - Movement disorder [Unknown]
  - Headache [Unknown]
  - Blindness [Unknown]
  - Eye disorder [Recovering/Resolving]
  - Chest discomfort [Recovered/Resolved]
  - Hypertension [Unknown]
  - Ovarian cyst [Unknown]
  - Adnexa uteri pain [Unknown]
  - Asthenia [Not Recovered/Not Resolved]
  - Body fat disorder [Unknown]
  - Dizziness [Not Recovered/Not Resolved]
  - Menstrual disorder [Unknown]
  - Drug ineffective [Unknown]
  - Mouth cyst [Unknown]
  - Paralysis [Recovering/Resolving]
  - Malaise [Not Recovered/Not Resolved]
  - Injury [Unknown]
  - Back injury [Unknown]
  - Dyspnoea [Recovered/Resolved]
  - Feeling abnormal [Unknown]
  - Overweight [Unknown]
  - Eye pain [Unknown]
  - Pain in extremity [Unknown]
  - Paraesthesia [Unknown]
  - Polycystic ovaries [Unknown]
  - Muscular weakness [Unknown]
  - Bone pain [Unknown]

NARRATIVE: CASE EVENT DATE: 20200522
